FAERS Safety Report 16075845 (Version 2)
Quarter: 2023Q4

REPORT INFORMATION
  Report Type: Spontaneous
  Country: DE (occurrence: DE)
  Receive Date: 20190315
  Receipt Date: 20231026
  Transmission Date: 20240110
  Serious: Yes (Congenital Anomaly, Other)
  Sender: FDA-Public Use
  Company Number: None

PATIENT
  Sex: Female

DRUGS (13)
  1. AMLODIPINE [Suspect]
     Active Substance: AMLODIPINE BESYLATE
     Route: 064
  2. BISOPROLOL [Suspect]
     Active Substance: BISOPROLOL\BISOPROLOL FUMARATE
     Route: 064
  3. METHYLDOPA [Suspect]
     Active Substance: METHYLDOPA
     Route: 064
  4. HYDROCHLOROTHIAZIDE [Suspect]
     Active Substance: HYDROCHLOROTHIAZIDE
     Route: 064
  5. METFORMIN [Suspect]
     Active Substance: METFORMIN HYDROCHLORIDE
     Route: 064
  6. ALISKIREN [Suspect]
     Active Substance: ALISKIREN
     Route: 064
  7. INSULIN HUMAN [Suspect]
     Active Substance: INSULIN HUMAN
     Route: 064
  8. FOLIC ACID [Suspect]
     Active Substance: FOLIC ACID
     Route: 064
  9. METOPROLOL TARTRATE [Suspect]
     Active Substance: METOPROLOL TARTRATE
     Route: 064
  10. INDAPAMIDE [Suspect]
     Active Substance: INDAPAMIDE
     Route: 064
  11. INSULIN GLARGINE [Suspect]
     Active Substance: INSULIN GLARGINE
     Route: 064
  12. PERINDOPRIL [Suspect]
     Active Substance: PERINDOPRIL
     Route: 064
  13. INSULIN ASPART [Suspect]
     Active Substance: INSULIN ASPART
     Route: 064

REACTIONS (2)
  - Conjoined twins [Unknown]
  - Foetal exposure during pregnancy [Unknown]
